FAERS Safety Report 10310469 (Version 2)
Quarter: 2014Q3

REPORT INFORMATION
  Report Type: Report from Study
  Country: CA (occurrence: CA)
  Receive Date: 20140717
  Receipt Date: 20140717
  Transmission Date: 20150326
  Serious: Yes (Other)
  Sender: FDA-Public Use
  Company Number: PHHY2014CA073651

PATIENT
  Sex: Male

DRUGS (3)
  1. DICLOFENAC [Concomitant]
     Active Substance: DICLOFENAC
     Dosage: UNK UKN, UNK
  2. TASIGNA [Suspect]
     Active Substance: NILOTINIB
     Indication: CHRONIC MYELOID LEUKAEMIA
     Dosage: 300 MG, BID
     Route: 048
     Dates: start: 201405
  3. WATER PILLS [Concomitant]
     Dosage: HALF DOSE, UNK

REACTIONS (6)
  - Nausea [Unknown]
  - Acne [Unknown]
  - Anxiety [Unknown]
  - Paranoia [Unknown]
  - Alopecia [Unknown]
  - Anger [Unknown]
